FAERS Safety Report 16869911 (Version 1)
Quarter: 2019Q3

REPORT INFORMATION
  Report Type: Spontaneous
  Country: GB (occurrence: GB)
  Receive Date: 20190930
  Receipt Date: 20190930
  Transmission Date: 20191005
  Serious: Yes (Other)
  Sender: FDA-Public Use
  Company Number: GB-NAPPMUNDI-GBR-2019-0070710

PATIENT
  Age: 73 Year
  Sex: Male
  Weight: 77.11 kg

DRUGS (7)
  1. BUTEC [Suspect]
     Active Substance: BUPRENORPHINE
     Indication: ANALGESIC THERAPY
     Dosage: 15 MICROGRAM/HOUR
     Route: 062
     Dates: start: 20160619, end: 20190605
  2. ATORVASTATIN [Concomitant]
     Active Substance: ATORVASTATIN
     Dosage: 40 MG, UNK
  3. PERINDOPRIL [Concomitant]
     Active Substance: PERINDOPRIL
     Dosage: 4 MG, UNK
  4. ACETYLSALICYLIC ACID [Concomitant]
     Active Substance: ASPIRIN
     Dosage: 75 MG, [DISPERSIBLE]
  5. LERCANIDIPINE HYDROCHLORIDE [Concomitant]
     Active Substance: LERCANIDIPINE HYDROCHLORIDE
     Dosage: 10 MG, UNK
  6. BUTRANS [Suspect]
     Active Substance: BUPRENORPHINE
     Indication: ANALGESIC THERAPY
     Dosage: 15 MICROGRAM/HOUR
     Route: 062
     Dates: start: 20190605, end: 20190813
  7. AMITRIPTYLINE [Concomitant]
     Active Substance: AMITRIPTYLINE
     Dosage: 75 MG, UNK

REACTIONS (3)
  - Skin exfoliation [Unknown]
  - Application site burn [Recovered/Resolved with Sequelae]
  - Application site reaction [Recovered/Resolved with Sequelae]

NARRATIVE: CASE EVENT DATE: 20190518
